FAERS Safety Report 21966844 (Version 1)
Quarter: 2023Q1

REPORT INFORMATION
  Report Type: Spontaneous
  Country: US (occurrence: None)
  Receive Date: 20230207
  Receipt Date: 20230207
  Transmission Date: 20230417
  Serious: Yes (Hospitalization)
  Sender: FDA-Public Use
  Company Number: None

PATIENT
  Sex: Male

DRUGS (3)
  1. ABIRATERONE ACETATE [Suspect]
     Active Substance: ABIRATERONE ACETATE
     Indication: Prostate cancer
     Dosage: 500 MG ORAL??TAKE 2 TABLETS BY MOUTH ONCE DAILY.
     Route: 048
     Dates: start: 20230114
  2. ELIGARD [Concomitant]
     Active Substance: LEUPROLIDE ACETATE
  3. VITAMINS [Concomitant]
     Active Substance: VITAMINS

REACTIONS (2)
  - Hospitalisation [None]
  - Therapy interrupted [None]
